FAERS Safety Report 9695034 (Version 1)
Quarter: 2013Q4

REPORT INFORMATION
  Report Type: Spontaneous
  Country: NO (occurrence: NO)
  Receive Date: 20131119
  Receipt Date: 20131119
  Transmission Date: 20140711
  Serious: Yes (Hospitalization)
  Sender: FDA-Public Use
  Company Number: NO-JNJFOC-20131108095

PATIENT
  Age: 40 Year
  Sex: Female

DRUGS (8)
  1. XARELTO [Suspect]
     Indication: CEREBROVASCULAR ACCIDENT PROPHYLAXIS
     Route: 048
  2. XARELTO [Suspect]
     Indication: CEREBROVASCULAR ACCIDENT PROPHYLAXIS
     Route: 048
     Dates: start: 20130905, end: 20131016
  3. XARELTO [Suspect]
     Indication: ATRIAL FIBRILLATION
     Route: 048
  4. XARELTO [Suspect]
     Indication: ATRIAL FIBRILLATION
     Route: 048
     Dates: start: 20130905, end: 20131016
  5. MAGNESIUM [Concomitant]
     Route: 048
  6. IBUX [Concomitant]
     Route: 048
  7. PARACET [Concomitant]
     Route: 048
  8. SELO-ZOK [Concomitant]
     Indication: ATRIAL FIBRILLATION
     Route: 048

REACTIONS (1)
  - Thrombocytopenic purpura [Recovering/Resolving]
